FAERS Safety Report 4957797-1 (Version None)
Quarter: 2006Q1

REPORT INFORMATION
  Report Type: 
  Country: None (occurrence: None)
  Receive Date: 20060330
  Receipt Date: 20060127
  Transmission Date: 20060701
  Serious: Yes (Death, Life-Threatening, Hospitalization)
  Sender: FDA-Public Use
  Company Number: FR-BRISTOL-MYERS SQUIBB COMPANY-13263405

PATIENT
  Age: 75 Year
  Sex: Male

DRUGS (1)
  1. APROVEL TABS 150 MG [Suspect]
     Indication: HYPERTENSION
     Route: 048
     Dates: start: 20051130, end: 20051209

REACTIONS (2)
  - AORTIC ANEURYSM RUPTURE [None]
  - BLOOD CREATININE INCREASED [None]
